FAERS Safety Report 8162380-3 (Version None)
Quarter: 2012Q1

REPORT INFORMATION
  Report Type: 
  Country: None (occurrence: None)
  Receive Date: 20120224
  Receipt Date: 20120213
  Transmission Date: 20120608
  Serious: Yes (Hospitalization, Other)
  Sender: FDA-Public Use
  Company Number: US-ELI_LILLY_AND_COMPANY-US201201001296

PATIENT
  Age: 57 Year
  Sex: Female
  Weight: 57.596 kg

DRUGS (19)
  1. OXYCODONE HCL [Concomitant]
     Dosage: 15 MG, PRN
  2. FORTEO [Suspect]
     Indication: OSTEOPOROSIS
     Dosage: 20 UG, QD
     Route: 058
     Dates: end: 20110101
  3. PREDNISONE [Concomitant]
     Dosage: 5 MG, UNK
  4. HUMIRA [Concomitant]
     Dosage: UNK, 2/M
  5. DURAGESIC-100 [Concomitant]
     Dosage: 75 MG, UNK
  6. FLUOXETINE HCL [Concomitant]
  7. VITAMIN B-12 [Concomitant]
  8. AMBIEN [Concomitant]
     Dosage: 10 MG, QD
  9. LAMICTAL [Concomitant]
     Dosage: 2 DF, QD
  10. CLONAZEPAM [Concomitant]
     Dosage: 2 MG, QD
  11. ZOLOFT [Concomitant]
  12. PRILOSEC [Concomitant]
     Dosage: 80 MG, QD
  13. VITAMIN D [Concomitant]
     Dosage: UNK UNK, QD
  14. REMERON [Concomitant]
  15. SKELAXIN [Concomitant]
  16. CALCIUM [Concomitant]
     Dosage: UNK UNK, QD
  17. FORTEO [Suspect]
     Dosage: 20 UG, QD
     Route: 058
     Dates: start: 20110801
  18. OXYCODONE HCL [Concomitant]
     Dosage: 50 MG, UNK
  19. ROBAXIN [Concomitant]
     Indication: MUSCLE DISORDER
     Dosage: 500 MG, TID

REACTIONS (9)
  - SPINAL COLUMN STENOSIS [None]
  - SPINAL COMPRESSION FRACTURE [None]
  - SPINAL DISORDER [None]
  - IMPAIRED HEALING [None]
  - DISLOCATION OF VERTEBRA [None]
  - GAIT DISTURBANCE [None]
  - THORACIC VERTEBRAL FRACTURE [None]
  - HIP FRACTURE [None]
  - DEVICE BREAKAGE [None]
